FAERS Safety Report 24094919 (Version 1)
Quarter: 2024Q3

REPORT INFORMATION
  Report Type: Report from Study
  Country: US (occurrence: None)
  Receive Date: 20240716
  Receipt Date: 20240716
  Transmission Date: 20241017
  Serious: Yes (Other)
  Sender: ASTRAZENECA
  Company Number: 2020SF57882

PATIENT
  Age: 64 Year
  Sex: Female

DRUGS (1)
  1. LYNPARZA [Suspect]
     Active Substance: OLAPARIB
     Indication: Ovarian cancer
     Route: 048

REACTIONS (5)
  - Full blood count decreased [Unknown]
  - Blood pressure abnormal [Unknown]
  - Heart rate increased [Unknown]
  - Nervousness [Unknown]
  - Fatigue [Unknown]
